FAERS Safety Report 16413239 (Version 1)
Quarter: 2019Q2

REPORT INFORMATION
  Report Type: Spontaneous
  Country: KR (occurrence: KR)
  Receive Date: 20190611
  Receipt Date: 20190611
  Transmission Date: 20190711
  Serious: Yes (Hospitalization)
  Sender: FDA-Public Use
  Company Number: KR-009507513-1905KOR008080

PATIENT
  Sex: Female

DRUGS (12)
  1. LYRICA [Concomitant]
     Active Substance: PREGABALIN
     Dosage: QUANTITY:1, DAYS:1
     Dates: start: 20190524, end: 20190524
  2. SODIUM CHLORIDE. [Concomitant]
     Active Substance: SODIUM CHLORIDE
     Dosage: QUANTITY:2, DAYS:1
     Dates: start: 20190508
  3. KEYTRUDA [Suspect]
     Active Substance: PEMBROLIZUMAB
     Dosage: QUANTITY:2, DAYS:1
     Dates: start: 20190528, end: 20190528
  4. IRCODON [Concomitant]
     Active Substance: OXYCODONE HYDROCHLORIDE
     Dosage: QUANTITY:2, DAYS:1
     Dates: start: 20190524, end: 20190524
  5. DUROGESIC [Concomitant]
     Active Substance: FENTANYL
     Dosage: 50MCG/H 21CM2, QUATITY 2, DAYS:10
     Dates: start: 20190508
  6. ABSTRAL [Concomitant]
     Active Substance: FENTANYL CITRATE
     Dosage: QUANTITY: 4, DAYS:14
     Dates: start: 20190508
  7. TARGIN [Concomitant]
     Active Substance: NALOXONE HYDROCHLORIDE\OXYCODONE HYDROCHLORIDE
     Dosage: QUANTITY:3, DAYS:21
     Dates: start: 20190508
  8. LYRICA [Concomitant]
     Active Substance: PREGABALIN
     Dosage: QUANTITY: 2, DAYS:21
     Dates: start: 20190508
  9. SODIUM CHLORIDE. [Concomitant]
     Active Substance: SODIUM CHLORIDE
     Dosage: QUANTITY:2, DAYS:1
     Dates: start: 20190508
  10. KEYTRUDA [Suspect]
     Active Substance: PEMBROLIZUMAB
     Indication: MESOTHELIOMA
     Dosage: QUANTITY:2, DAYS:1
     Dates: start: 20190508
  11. ABSTRAL [Concomitant]
     Active Substance: FENTANYL CITRATE
     Dosage: UNK
  12. IRCODON [Concomitant]
     Active Substance: OXYCODONE HYDROCHLORIDE
     Dosage: QUANTITY:8, DAYS:21
     Dates: start: 20190508

REACTIONS (2)
  - Product use in unapproved indication [Unknown]
  - Adverse event [Unknown]

NARRATIVE: CASE EVENT DATE: 20190508
